FAERS Safety Report 9767651 (Version 1)
Quarter: 2013Q4

REPORT INFORMATION
  Report Type: Spontaneous
  Country: US (occurrence: US)
  Receive Date: 20131217
  Receipt Date: 20131217
  Transmission Date: 20140711
  Serious: No
  Sender: FDA-Public Use
  Company Number: US-BAYER-2013-154018

PATIENT
  Age: 49 Year
  Sex: Male

DRUGS (3)
  1. MAGNEVIST [Suspect]
     Indication: NUCLEAR MAGNETIC RESONANCE IMAGING
     Dosage: 14 ML, ONCE
     Route: 042
     Dates: start: 20131216, end: 20131216
  2. MAGNEVIST [Suspect]
     Indication: PAIN
  3. MAGNEVIST [Suspect]
     Indication: DERMATITIS ALLERGIC

REACTIONS (4)
  - Hyperhidrosis [None]
  - Tremor [None]
  - Oropharyngeal discomfort [None]
  - Nausea [None]
